FAERS Safety Report 14451889 (Version 2)
Quarter: 2019Q1

REPORT INFORMATION
  Report Type: Spontaneous
  Country: US (occurrence: US)
  Receive Date: 20180129
  Receipt Date: 20190204
  Transmission Date: 20190417
  Serious: Yes (Life-Threatening, Hospitalization, Other)
  Sender: FDA-Public Use
  Company Number: US-ABBVIE-17K-163-2207267-00

PATIENT
  Age: 74 Year
  Sex: Male
  Weight: 74.46 kg

DRUGS (7)
  1. CIPRO [Suspect]
     Active Substance: CIPROFLOXACIN HYDROCHLORIDE
     Indication: FUNGAL INFECTION
  2. PREDNISONE. [Concomitant]
     Active Substance: PREDNISONE
     Indication: RHEUMATOID ARTHRITIS
     Dates: start: 200307
  3. CIPRO [Suspect]
     Active Substance: CIPROFLOXACIN HYDROCHLORIDE
     Indication: BACTERIAL INFECTION
     Route: 042
  4. XELJANZ XR [Suspect]
     Active Substance: TOFACITINIB CITRATE
     Indication: RHEUMATOID ARTHRITIS
     Route: 048
     Dates: start: 20170914
  5. HUMIRA [Suspect]
     Active Substance: ADALIMUMAB
     Indication: RHEUMATOID ARTHRITIS
     Route: 058
     Dates: start: 20060108, end: 20090820
  6. METHOTREXATE. [Suspect]
     Active Substance: METHOTREXATE
     Indication: RHEUMATOID ARTHRITIS
     Route: 065
     Dates: start: 20170831
  7. ARAVA [Suspect]
     Active Substance: LEFLUNOMIDE
     Indication: PRODUCT USED FOR UNKNOWN INDICATION
     Route: 065

REACTIONS (7)
  - Fungal infection [Unknown]
  - Drug hypersensitivity [Unknown]
  - Drug ineffective [Unknown]
  - Superinfection [Unknown]
  - Bacterial infection [Unknown]
  - Paranasal sinus hypersecretion [Recovering/Resolving]
  - Liver function test increased [Unknown]

NARRATIVE: CASE EVENT DATE: 2012
